FAERS Safety Report 9237981 (Version 1)
Quarter: 2013Q1

REPORT INFORMATION
  Report Type: Spontaneous
  Country: US (occurrence: None)
  Receive Date: 20121106
  Receipt Date: 20121106
  Transmission Date: 20140127
  Serious: Yes (Other)
  Sender: FDA-Public Use
  Company Number: 1000037491

PATIENT
  Age: 78 Year
  Sex: Female

DRUGS (19)
  1. DALIRESP [Suspect]
     Indication: CHRONIC OBSTRUCTIVE PULMONARY DISEASE
     Dosage: 500 MCG. (500 MCG, 1 IN 1 D)
     Dates: start: 20120426, end: 20120510
  2. LASIX (FUROSEMIDE) [Concomitant]
  3. ALBUTEROL (ALBUTEROL) (ALBUTEROL) [Concomitant]
  4. ATIVAN (LORAZEPAM) [Concomitant]
  5. VICODIN (VICODIN) [Concomitant]
  6. CELEXA (CITALOPRAM HYDROBROMIDE) [Concomitant]
  7. MIRALAX (POLYETHYLENE GLYCOL) [Concomitant]
  8. PREDNISONE (PREDNISONE) [Concomitant]
  9. MUCINEX (GUAIFENESIN) [Concomitant]
  10. ASTELIN (AZELASTINE HYDROCHLORIDE) [Concomitant]
  11. SYNTHROID (LEVOTHYROXINE SODIUM) [Concomitant]
  12. AMITIZA (LUBIPROSTONE) [Concomitant]
  13. VITAMIN D (VITAMINE D) [Concomitant]
  14. SPIRIVA (TIOTROPIUM BROMIDE) [Concomitant]
  15. PLAVIX (CLOPIDOGREL BISULFATE) [Concomitant]
  16. BYSTOLIC (NEBIVOLOL HYDROCHLORIDE) [Concomitant]
  17. ROSEREM (RAMELTEON) [Concomitant]
  18. LIBRAX (CHLORDIAZEPOXIDE, CLIDINIUM) [Concomitant]
  19. ADVAIR (SERETIDE) (SERETIDE) [Concomitant]

REACTIONS (2)
  - Suicidal ideation [None]
  - Anxiety [None]
